FAERS Safety Report 22135943 (Version 2)
Quarter: 2023Q2

REPORT INFORMATION
  Report Type: Spontaneous
  Country: US (occurrence: US)
  Receive Date: 20230324
  Receipt Date: 20230406
  Transmission Date: 20230722
  Serious: Yes (Hospitalization)
  Sender: FDA-Public Use
  Company Number: US-BRISTOL-MYERS SQUIBB COMPANY-2023-039887

PATIENT
  Age: 82 Year
  Sex: Female

DRUGS (1)
  1. REVLIMID [Suspect]
     Active Substance: LENALIDOMIDE
     Indication: Follicular lymphoma stage I
     Dosage: TAKE 1 CAPSULE BY MOUTH DAILY FOR 21
     Route: 048
     Dates: start: 20230315

REACTIONS (1)
  - Diarrhoea [Not Recovered/Not Resolved]
